FAERS Safety Report 19503008 (Version 5)
Quarter: 2021Q4

REPORT INFORMATION
  Report Type: Spontaneous
  Country: DE (occurrence: DE)
  Receive Date: 20210707
  Receipt Date: 20211220
  Transmission Date: 20220303
  Serious: Yes (Other)
  Sender: FDA-Public Use
  Company Number: DE-BRISTOL-MYERS SQUIBB COMPANY-BMS-2021-042429

PATIENT
  Age: 69 Year
  Sex: Female
  Weight: 115 kg

DRUGS (5)
  1. ELIQUIS [Suspect]
     Active Substance: APIXABAN
     Indication: Cerebrovascular accident prophylaxis
     Dosage: 5 MILLIGRAM, BID
     Route: 048
     Dates: start: 20210409
  2. ASPIRIN [Concomitant]
     Active Substance: ASPIRIN
     Indication: Transient ischaemic attack
     Dosage: 100
     Route: 065
  3. CANDESARTAN [Concomitant]
     Active Substance: CANDESARTAN
     Indication: Product used for unknown indication
     Dosage: 1 TAB IN THE MORNING, 0.5 TAB IN THE NIGHT
     Route: 065
  4. METOPROLOL [Concomitant]
     Active Substance: METOPROLOL
     Indication: Product used for unknown indication
     Dosage: 0.5 TAB, QD
     Route: 065
  5. PANTOPRAZOLE [Concomitant]
     Active Substance: PANTOPRAZOLE
     Indication: Product used for unknown indication
     Dosage: 40 MILLIGRAM, QD
     Route: 065

REACTIONS (22)
  - Jaw disorder [Unknown]
  - Nausea [Unknown]
  - Abdominal pain upper [Unknown]
  - Burning sensation [Unknown]
  - Drug intolerance [Unknown]
  - Contusion [Unknown]
  - Blood pressure abnormal [Not Recovered/Not Resolved]
  - Tooth disorder [Not Recovered/Not Resolved]
  - Dizziness [Unknown]
  - Gait disturbance [Unknown]
  - Injection site haematoma [Recovering/Resolving]
  - Peripheral swelling [Unknown]
  - Headache [Unknown]
  - Fall [Unknown]
  - Limb injury [Unknown]
  - Hypotension [Unknown]
  - Hypertension [Unknown]
  - Alopecia [Unknown]
  - Muscle atrophy [Unknown]
  - Pruritus [Unknown]
  - General physical health deterioration [Unknown]
  - Depression [Unknown]
